FAERS Safety Report 7308140-4 (Version None)
Quarter: 2011Q1

REPORT INFORMATION
  Report Type: 
  Country: None (occurrence: None)
  Receive Date: 20110223
  Receipt Date: 20110211
  Transmission Date: 20110831
  Serious: Yes (Life-Threatening, Hospitalization)
  Sender: FDA-Public Use
  Company Number: DE-SANOFI-AVENTIS-2010SA076573

PATIENT
  Age: 62 Year
  Sex: Male
  Weight: 90 kg

DRUGS (5)
  1. OPIUM TINCTURE [Concomitant]
     Route: 048
     Dates: start: 20101215, end: 20101219
  2. ELOXATIN [Suspect]
     Indication: RECTAL CANCER
     Route: 042
     Dates: start: 20101122, end: 20101122
  3. XELODA [Suspect]
     Indication: RECTAL CANCER
     Dosage: 825 MG/M2 BID D1-33 W/O WEEKENDS + OPTIONAL BOOST.
     Route: 048
     Dates: start: 20101122, end: 20101213
  4. ELOXATIN [Suspect]
     Dosage: D1, 8, 15, 22, 29
     Route: 042
     Dates: start: 20101212, end: 20101213
  5. THERAPEUTIC RADIOPHARMACEUTICALS [Suspect]
     Indication: RECTAL CANCER
     Dosage: 45 GY TOTAL DOSE, 1.8 GY D1-33 W/O WEEKENDS + OPTIONAL BOOST
     Dates: start: 20101122, end: 20101214

REACTIONS (6)
  - RENAL FAILURE ACUTE [None]
  - PALMAR-PLANTAR ERYTHRODYSAESTHESIA SYNDROME [None]
  - ILEUS PARALYTIC [None]
  - HYPOTONIA [None]
  - HYPOVOLAEMIC SHOCK [None]
  - DIARRHOEA [None]
